FAERS Safety Report 25044115 (Version 2)
Quarter: 2025Q1

REPORT INFORMATION
  Report Type: Spontaneous
  Country: JP (occurrence: JP)
  Receive Date: 20250306
  Receipt Date: 20250311
  Transmission Date: 20250408
  Serious: Yes (Hospitalization)
  Sender: ASTELLAS
  Company Number: JP-ASTELLAS-2025-AER-012201

PATIENT
  Age: 70 Year
  Sex: Male

DRUGS (5)
  1. PADCEV [Suspect]
     Active Substance: ENFORTUMAB VEDOTIN-EJFV
     Indication: Transitional cell carcinoma metastatic
     Route: 065
     Dates: start: 20241206
  2. Flumetholon ophthalmic suspension [Concomitant]
     Indication: Ocular hyperaemia
     Route: 047
  3. ORTEXER Ointment [Concomitant]
     Indication: Oral mucosa erosion
     Route: 065
  4. ORTEXER Ointment [Concomitant]
     Indication: Stomatitis
  5. ORTEXER Ointment [Concomitant]
     Indication: Perioral dermatitis

REACTIONS (5)
  - Ocular hyperaemia [Recovering/Resolving]
  - Oral mucosa erosion [Recovering/Resolving]
  - Stomatitis [Recovering/Resolving]
  - Perioral dermatitis [Recovering/Resolving]
  - Hepatic function abnormal [Not Recovered/Not Resolved]

NARRATIVE: CASE EVENT DATE: 20250228
